FAERS Safety Report 7469806-9 (Version None)
Quarter: 2011Q2

REPORT INFORMATION
  Report Type: 
  Country: None (occurrence: None)
  Receive Date: 20110510
  Receipt Date: 20100401
  Transmission Date: 20111010
  Serious: Yes (Hospitalization)
  Sender: FDA-Public Use
  Company Number: GB-ROCHE-645366

PATIENT
  Age: 45 Year
  Sex: Male

DRUGS (9)
  1. MYCOPHENOLATE MOFETIL [Suspect]
     Dosage: ROUTE: ORAL
     Route: 048
  2. METHYLPEDNISOLONE SODIUM SUCCINATE [Suspect]
     Route: 065
  3. SIMULECT [Suspect]
     Route: 065
  4. MYCOPHENOLATE MOFETIL [Suspect]
     Route: 048
  5. TACROLIMUS [Suspect]
     Route: 048
  6. HYDROCORTISONE [Suspect]
     Route: 065
  7. PREDNISOLONE [Suspect]
     Route: 048
  8. CYCLOSPORINE [Suspect]
     Route: 065
  9. MYCOPHENOLATE MOFETIL [Suspect]
     Route: 042

REACTIONS (2)
  - PANCREATIC FISTULA [None]
  - GENITOURINARY TRACT INFECTION [None]
